FAERS Safety Report 6792865-3 (Version None)
Quarter: 2010Q2

REPORT INFORMATION
  Report Type: 
  Country: None (occurrence: None)
  Receive Date: 20100624
  Receipt Date: 20081021
  Transmission Date: 20101027
  Serious: No
  Sender: FDA-Public Use
  Company Number: US-PFIZER INC-2008089448

PATIENT
  Sex: Female
  Weight: 78.2 kg

DRUGS (3)
  1. GEODON [Suspect]
     Indication: BIPOLAR DISORDER
     Dates: start: 20080901, end: 20081020
  2. LAMICTAL [Suspect]
  3. INSULIN [Concomitant]
     Indication: DIABETES MELLITUS

REACTIONS (8)
  - CONFUSIONAL STATE [None]
  - FEAR [None]
  - FEELING DRUNK [None]
  - INSOMNIA [None]
  - PANIC ATTACK [None]
  - PERFORMANCE STATUS DECREASED [None]
  - SEDATION [None]
  - TONGUE DISORDER [None]
